FAERS Safety Report 8504946-4 (Version None)
Quarter: 2012Q3

REPORT INFORMATION
  Report Type: 
  Country: None (occurrence: None)
  Receive Date: 20120712
  Receipt Date: 20120709
  Transmission Date: 20120928
  Serious: Yes (Hospitalization)
  Sender: FDA-Public Use
  Company Number: PHHO2012US010227

PATIENT
  Sex: Male
  Weight: 95.1 kg

DRUGS (7)
  1. NORCO [Concomitant]
     Dosage: 325 MG, UNK
     Route: 048
  2. REGLAN [Concomitant]
     Dosage: 10 MG, QD
     Route: 048
  3. ATENOLOL [Concomitant]
     Indication: HYPERTENSION
     Dosage: 50 MG, QD
     Route: 048
  4. AFINITOR [Suspect]
     Indication: NON-RENAL CELL CARCINOMA OF KIDNEY
     Dosage: 10 MG, QD
     Route: 048
     Dates: start: 20120207
  5. AUGMENTIN '125' [Concomitant]
     Indication: INFECTION
     Dosage: 875 MG, BID
     Route: 048
  6. COLACE [Concomitant]
     Dosage: 100 MG, QD
     Route: 048
  7. TRICOR [Concomitant]
     Indication: HYPERLIPIDAEMIA
     Dosage: 145 MG, QD
     Route: 048

REACTIONS (1)
  - CEREBRAL ISCHAEMIA [None]
